FAERS Safety Report 7968673-4 (Version None)
Quarter: 2011Q4

REPORT INFORMATION
  Report Type: 
  Country: None (occurrence: None)
  Receive Date: 20111209
  Receipt Date: 20111201
  Transmission Date: 20120403
  Serious: Yes (Hospitalization)
  Sender: FDA-Public Use
  Company Number: IE-GLAXOSMITHKLINE-B0764411A

PATIENT
  Sex: Female
  Weight: 78.7 kg

DRUGS (8)
  1. DOCETAXEL [Suspect]
     Indication: BREAST CANCER
     Route: 042
     Dates: start: 20111004
  2. TRASTUZUMAB [Suspect]
     Indication: BREAST CANCER
     Route: 042
     Dates: start: 20111004
  3. DEXAMETHASONE SODIUM PHOSPHATE [Concomitant]
     Dosage: 8MG PER DAY
     Route: 048
     Dates: start: 20111003
  4. LAPATINIB [Suspect]
     Indication: BREAST CANCER
     Route: 048
     Dates: start: 20111004
  5. ATORVASTATIN [Concomitant]
     Dosage: 10MG PER DAY
     Route: 048
     Dates: start: 20010101
  6. CARBOPLATIN [Suspect]
     Indication: BREAST CANCER
     Route: 042
     Dates: start: 20111004
  7. LANSOPRAZOLE [Concomitant]
     Dosage: 30MG PER DAY
     Route: 048
     Dates: start: 20090101
  8. MOTILIUM [Concomitant]
     Dosage: 90MG PER DAY
     Route: 048
     Dates: start: 20111005

REACTIONS (1)
  - WOUND INFECTION [None]
